FAERS Safety Report 7542553-0 (Version None)
Quarter: 2011Q2

REPORT INFORMATION
  Report Type: 
  Country: None (occurrence: None)
  Receive Date: 20110613
  Receipt Date: 20110610
  Transmission Date: 20111010
  Serious: Yes (Life-Threatening, Hospitalization)
  Sender: FDA-Public Use
  Company Number: GB-ROCHE-775747

PATIENT
  Sex: Female
  Weight: 64 kg

DRUGS (3)
  1. DOCETAXEL [Suspect]
     Dosage: CYCLE;3
     Route: 065
     Dates: start: 20110513
  2. BEVACIZUMAB [Suspect]
     Indication: BREAST CANCER
     Dosage: CYCLE NO.: 2, THERAPY INTERRUPTED
     Route: 065
     Dates: start: 20110421
  3. DOCETAXEL [Suspect]
     Indication: BREAST CANCER
     Dosage: CYCLE NO.: 2
     Route: 065
     Dates: start: 20110421

REACTIONS (5)
  - RENAL INJURY [None]
  - NEPHROPATHY TOXIC [None]
  - PYREXIA [None]
  - FEBRILE NEUTROPENIA [None]
  - RENAL FAILURE ACUTE [None]
